FAERS Safety Report 4411635-4 (Version None)
Quarter: 2004Q3

REPORT INFORMATION
  Report Type: 
  Country: None (occurrence: None)
  Receive Date: 20040728
  Receipt Date: 20040728
  Transmission Date: 20050211
  Serious: Yes (Hospitalization)
  Sender: FDA-Public Use
  Company Number: None

PATIENT
  Age: 51 Year
  Sex: Male
  Weight: 107 kg

DRUGS (8)
  1. NAPROXEN [Suspect]
     Indication: ARTHRITIS
     Dosage: 1500 MG , 500 MG TI ORAL
     Route: 048
     Dates: end: 20040405
  2. TERAZOSIN HCL [Concomitant]
  3. SERTRALINE HCL [Concomitant]
  4. RISPERIDONE [Concomitant]
  5. FELODIPINE [Concomitant]
  6. ACETAMINOPHEN [Concomitant]
  7. HYDROCHLOROTHIAZIDE [Concomitant]
  8. NAPROXEN [Concomitant]

REACTIONS (1)
  - GASTROINTESTINAL HAEMORRHAGE [None]
